FAERS Safety Report 10259788 (Version 1)
Quarter: 2014Q2

REPORT INFORMATION
  Report Type: Spontaneous
  Country: US (occurrence: US)
  Receive Date: 20140625
  Receipt Date: 20140625
  Transmission Date: 20141212
  Serious: No
  Sender: FDA-Public Use
  Company Number: US-ASTELLAS-2014US002729

PATIENT
  Sex: Female

DRUGS (2)
  1. VESICARE [Suspect]
     Indication: PRODUCT USED FOR UNKNOWN INDICATION
     Route: 048
     Dates: start: 201402, end: 20140302
  2. VESICARE [Suspect]
     Route: 048
     Dates: start: 20130303, end: 20130310

REACTIONS (3)
  - Inappropriate schedule of drug administration [Unknown]
  - Dry mouth [Unknown]
  - Vision blurred [Unknown]
